FAERS Safety Report 4788298-1 (Version None)
Quarter: 2005Q4

REPORT INFORMATION
  Report Type: 
  Country: None (occurrence: None)
  Receive Date: 20051003
  Receipt Date: 20050922
  Transmission Date: 20060501
  Serious: Yes (Other)
  Sender: FDA-Public Use
  Company Number: 2005126594

PATIENT
  Age: 76 Year
  Sex: Male
  Weight: 134.7183 kg

DRUGS (1)
  1. VIAGRA [Suspect]
     Indication: ORGANIC ERECTILE DYSFUNCTION
     Dosage: 50 MG (50 MG, 1 AS NECESSARY), ORAL
     Route: 048
     Dates: start: 20030117, end: 20030201

REACTIONS (1)
  - OPTIC ISCHAEMIC NEUROPATHY [None]
